FAERS Safety Report 14474584 (Version 1)
Quarter: 2018Q1

REPORT INFORMATION
  Report Type: Spontaneous
  Country: JP (occurrence: JP)
  Receive Date: 20180201
  Receipt Date: 20180201
  Transmission Date: 20180509
  Serious: Yes (Other)
  Sender: FDA-Public Use
  Company Number: JP-MYLANLABS-2018M1006023

PATIENT
  Age: 80 Year
  Sex: Male

DRUGS (5)
  1. THIAMYLAL [Suspect]
     Active Substance: THIAMYLAL
     Indication: INDUCTION OF ANAESTHESIA
     Dosage: 250 MG, UNK
     Route: 065
  2. ROPIVACAINE [Suspect]
     Active Substance: ROPIVACAINE
     Indication: INDUCTION OF ANAESTHESIA
     Dosage: 10 ML, UNK
     Route: 065
  3. REMIFENTANIL [Suspect]
     Active Substance: REMIFENTANIL
     Indication: INDUCTION OF ANAESTHESIA
     Dosage: 0.2 ?G/KG, QMINUTE
     Route: 065
  4. ROCURONIUM [Suspect]
     Active Substance: ROCURONIUM BROMIDE
     Indication: INDUCTION OF ANAESTHESIA
     Dosage: 50 MG, UNK
     Route: 065
  5. SEVOFLURANE. [Suspect]
     Active Substance: SEVOFLURANE
     Indication: INDUCTION OF ANAESTHESIA
     Dosage: 2 UNK, UNK
     Route: 065

REACTIONS (1)
  - Bradycardia [Recovering/Resolving]
